FAERS Safety Report 19313655 (Version 1)
Quarter: 2021Q2

REPORT INFORMATION
  Report Type: Report from Study
  Country: US (occurrence: US)
  Receive Date: 20210527
  Receipt Date: 20210527
  Transmission Date: 20210717
  Serious: Yes (Other)
  Sender: FDA-Public Use
  Company Number: US-AUROBINDO-AUR-APL-2021-021195

PATIENT
  Age: 13 Year
  Sex: Female

DRUGS (7)
  1. CIPROFLOXACIN;DEXAMETHASONE [Suspect]
     Active Substance: CIPROFLOXACIN\DEXAMETHASONE
     Indication: MASTOIDITIS
     Dosage: UNK
     Route: 065
  2. AMOXICILLIN/CLAVULANIC ACID [Concomitant]
     Active Substance: AMOXICILLIN\CLAVULANIC ACID
     Indication: PRODUCT USED FOR UNKNOWN INDICATION
     Dosage: UNK (A TOTAL OF 14 DAY COURSE)
     Route: 065
  3. CLINDAMYCIN. [Concomitant]
     Active Substance: CLINDAMYCIN
     Indication: PRODUCT USED FOR UNKNOWN INDICATION
     Dosage: UNK (14 DAY COURSE)
     Route: 065
  4. CEFDINIR. [Suspect]
     Active Substance: CEFDINIR
     Indication: MASTOIDITIS
     Dosage: UNK
     Route: 065
  5. PREDNISONE. [Concomitant]
     Active Substance: PREDNISONE
     Indication: PRODUCT USED FOR UNKNOWN INDICATION
     Dosage: UNK (7 DAYS)
     Route: 065
  6. AMOXICILLIN. [Suspect]
     Active Substance: AMOXICILLIN
     Indication: MASTOIDITIS
     Dosage: UNK
     Route: 065
  7. CIPROFLOXACIN;DEXAMETHASONE [Suspect]
     Active Substance: CIPROFLOXACIN\DEXAMETHASONE
     Dosage: UNK (14 DAY COURSE)
     Route: 065

REACTIONS (1)
  - Drug ineffective [Unknown]
